FAERS Safety Report 13939142 (Version 3)
Quarter: 2017Q4

REPORT INFORMATION
  Report Type: Report from Study
  Country: US (occurrence: US)
  Receive Date: 20170906
  Receipt Date: 20171205
  Transmission Date: 20180320
  Serious: Yes (Hospitalization, Other)
  Sender: FDA-Public Use
  Company Number: US-ROCHE-1612593

PATIENT
  Age: 78 Year
  Sex: Male
  Weight: 90.8 kg

DRUGS (33)
  1. AVAPRO [Concomitant]
     Active Substance: IRBESARTAN
     Dosage: 300 MG TABLETS
     Route: 048
  2. ROBAXIN [Concomitant]
     Active Substance: METHOCARBAMOL
     Route: 048
  3. SYNTHROID [Concomitant]
     Active Substance: LEVOTHYROXINE SODIUM
     Route: 048
  4. TENORMIN [Concomitant]
     Active Substance: ATENOLOL
     Route: 048
  5. POTASSIUM CHLORIDE. [Concomitant]
     Active Substance: POTASSIUM CHLORIDE
     Dosage: 10 MEQ TBCR
     Route: 048
  6. ESBRIET [Suspect]
     Active Substance: PIRFENIDONE
     Indication: IDIOPATHIC PULMONARY FIBROSIS
     Route: 048
  7. ESBRIET [Suspect]
     Active Substance: PIRFENIDONE
     Route: 048
  8. AFRIN (OXYMETAZOLINE) [Concomitant]
     Dosage: AS NEEDED
     Route: 065
  9. COMPAZINE [Concomitant]
     Active Substance: PROCHLORPERAZINE MALEATE
     Route: 065
  10. ESBRIET [Suspect]
     Active Substance: PIRFENIDONE
     Indication: IDIOPATHIC PULMONARY FIBROSIS
     Route: 048
  11. ESBRIET [Suspect]
     Active Substance: PIRFENIDONE
     Route: 048
  12. ESBRIET [Suspect]
     Active Substance: PIRFENIDONE
     Dosage: THRICE A DAY
     Route: 048
  13. PROCHLORPERAZINE MALEATE. [Concomitant]
     Active Substance: PROCHLORPERAZINE MALEATE
     Dosage: 5 MG TABLETS, AS NEEDED.
     Route: 065
  14. TERAZOSIN HCL [Concomitant]
     Active Substance: TERAZOSIN HYDROCHLORIDE
     Route: 048
  15. VISINE EXTRA [Concomitant]
     Dosage: AS NEEDED.
     Route: 065
  16. VALIUM [Suspect]
     Active Substance: DIAZEPAM
     Indication: PRODUCT USED FOR UNKNOWN INDICATION
     Route: 048
  17. ZANTAC [Concomitant]
     Active Substance: RANITIDINE HYDROCHLORIDE
     Dosage: 300 MG TABLETS, AS NEEDED.
     Route: 065
  18. LASIX [Concomitant]
     Active Substance: FUROSEMIDE
     Route: 048
  19. ESBRIET [Suspect]
     Active Substance: PIRFENIDONE
     Route: 048
     Dates: start: 2014
  20. ASPERCREME (UNITED STATES) [Concomitant]
     Dosage: AS NEEDED.
     Route: 065
  21. LASIX [Concomitant]
     Active Substance: FUROSEMIDE
     Route: 048
  22. LOMOTIL [Concomitant]
     Active Substance: ATROPINE SULFATE\DIPHENOXYLATE HYDROCHLORIDE
     Dosage: 2.5-0.025 MG TABLETS, AS NEEDED
     Route: 065
  23. ESBRIET [Suspect]
     Active Substance: PIRFENIDONE
     Route: 048
     Dates: start: 201506
  24. ELIQUIS [Suspect]
     Active Substance: APIXABAN
     Indication: PRODUCT USED FOR UNKNOWN INDICATION
     Route: 065
  25. COUMADIN [Suspect]
     Active Substance: WARFARIN SODIUM
     Indication: PRODUCT USED FOR UNKNOWN INDICATION
     Route: 065
  26. OXYCODONE HYDROCHLORIDE. [Concomitant]
     Active Substance: OXYCODONE HYDROCHLORIDE
     Dosage: 10 MG TABLETS AS NEEDED
     Route: 065
  27. ESBRIET [Suspect]
     Active Substance: PIRFENIDONE
     Route: 048
     Dates: start: 20151117
  28. BACTROBAN [Concomitant]
     Active Substance: MUPIROCIN\MUPIROCIN CALCIUM
     Dosage: AS NEEDED
     Route: 065
  29. HYDROXYZINE HCL [Concomitant]
     Active Substance: HYDROXYZINE HYDROCHLORIDE
     Dosage: 25 MG TABLETS AS NEEDED
     Route: 065
  30. RITALIN LA [Concomitant]
     Active Substance: METHYLPHENIDATE HYDROCHLORIDE
     Dosage: 10 MG CP 24, 1TABLET BY MOUTH ONCE DAILY
     Route: 048
  31. ROBAXIN [Concomitant]
     Active Substance: METHOCARBAMOL
     Dosage: 500 MG TABLETS, AS NEEDED.
     Route: 048
  32. WARFARIN [Concomitant]
     Active Substance: WARFARIN
     Dosage: AS DIRECTED.
     Route: 048
  33. CLONIDINE. [Concomitant]
     Active Substance: CLONIDINE

REACTIONS (42)
  - Hypertension [Unknown]
  - Dyspnoea [Unknown]
  - Hypoaesthesia [Unknown]
  - Arthralgia [Unknown]
  - Thrombosis [Unknown]
  - Peripheral swelling [Recovered/Resolved]
  - Rash [Unknown]
  - Asthenia [Recovering/Resolving]
  - Diarrhoea [Unknown]
  - Oesophagitis [Unknown]
  - Muscular weakness [Unknown]
  - Balance disorder [Unknown]
  - Headache [Unknown]
  - Rash erythematous [Unknown]
  - Fatigue [Unknown]
  - Tinnitus [Unknown]
  - Nausea [Unknown]
  - Extra dose administered [Unknown]
  - Intervertebral disc protrusion [Unknown]
  - Pain in extremity [Unknown]
  - Retching [Unknown]
  - Pulmonary embolism [Unknown]
  - Pulmonary thrombosis [Unknown]
  - Vomiting [Unknown]
  - Rash macular [Recovered/Resolved]
  - Dehydration [Unknown]
  - Oedema [Unknown]
  - Foreign body in respiratory tract [Unknown]
  - Extraocular muscle paresis [Unknown]
  - Vertigo [Unknown]
  - Insomnia [Unknown]
  - Abdominal discomfort [Unknown]
  - Sinusitis [Unknown]
  - Back pain [Unknown]
  - Regurgitation [Unknown]
  - Malaise [Recovering/Resolving]
  - Nausea [Recovering/Resolving]
  - Contusion [Unknown]
  - Dizziness [Recovering/Resolving]
  - Skin discolouration [Unknown]
  - Stenosis [Unknown]
  - Gastritis [Unknown]

NARRATIVE: CASE EVENT DATE: 201707
